FAERS Safety Report 6685674-7 (Version None)
Quarter: 2010Q2

REPORT INFORMATION
  Report Type: 
  Country: None (occurrence: None)
  Receive Date: 20100419
  Receipt Date: 20100409
  Transmission Date: 20101027
  Serious: No
  Sender: FDA-Public Use
  Company Number: US-BIOGENIDEC-2010BI012723

PATIENT
  Age: 55 Year
  Sex: Female

DRUGS (1)
  1. TYSABRI [Suspect]
     Indication: MULTIPLE SCLEROSIS
     Route: 042
     Dates: start: 20091101

REACTIONS (11)
  - ARTHRALGIA [None]
  - CLOSTRIDIAL INFECTION [None]
  - COUGH [None]
  - EYE SWELLING [None]
  - HYPERSENSITIVITY [None]
  - JOINT SWELLING [None]
  - NASOPHARYNGITIS [None]
  - OCULAR HYPERAEMIA [None]
  - OROPHARYNGEAL PAIN [None]
  - PARANASAL SINUS HYPERSECRETION [None]
  - SINUSITIS [None]
